FAERS Safety Report 24379574 (Version 1)
Quarter: 2024Q3

REPORT INFORMATION
  Report Type: Spontaneous
  Country: US (occurrence: US)
  Receive Date: 20240930
  Receipt Date: 20240930
  Transmission Date: 20241016
  Serious: No
  Sender: JOHNSON AND JOHNSON
  Company Number: US-JNJFOC-20240965583

PATIENT
  Sex: Male

DRUGS (2)
  1. RISPERDAL [Suspect]
     Active Substance: RISPERIDONE
     Indication: Aggression
     Dosage: VARYING DOSES OF 0.25 MG AND 0.5 MG TWICE OR THRICE DAILY
     Route: 048
     Dates: start: 201201, end: 2014
  2. RISPERDAL [Suspect]
     Active Substance: RISPERIDONE
     Indication: Anger

REACTIONS (4)
  - Obesity [Not Recovered/Not Resolved]
  - Galactorrhoea [Unknown]
  - Drug ineffective [Unknown]
  - Off label use [Unknown]
